FAERS Safety Report 17492599 (Version 1)
Quarter: 2020Q1

REPORT INFORMATION
  Report Type: Spontaneous
  Country: US (occurrence: US)
  Receive Date: 20200303
  Receipt Date: 20200303
  Transmission Date: 20200409
  Serious: No
  Sender: FDA-Public Use
  Company Number: US-TEVA-2020-US-1192976

PATIENT
  Sex: Female

DRUGS (1)
  1. NORTREL 28 DAY [Suspect]
     Active Substance: ETHINYL ESTRADIOL\NORETHINDRONE
     Indication: CONTRACEPTION
     Route: 065

REACTIONS (5)
  - Feeling hot [Recovered/Resolved]
  - Pruritus [Recovered/Resolved]
  - Product substitution issue [Unknown]
  - Urticaria [Recovered/Resolved]
  - Erythema [Recovered/Resolved]

NARRATIVE: CASE EVENT DATE: 20200113
